FAERS Safety Report 18213083 (Version 1)
Quarter: 2020Q3

REPORT INFORMATION
  Report Type: Spontaneous
  Country: CA (occurrence: CA)
  Receive Date: 20200831
  Receipt Date: 20200831
  Transmission Date: 20201103
  Serious: Yes (Life-Threatening)
  Sender: FDA-Public Use
  Company Number: CA-TEVA-2020-CA-1819822

PATIENT
  Age: 69 Year
  Sex: Male
  Weight: 113 kg

DRUGS (21)
  1. CLONAZEPAM. [Concomitant]
     Active Substance: CLONAZEPAM
  2. GLICLAZIDE [Concomitant]
     Active Substance: GLICLAZIDE
  3. SENOKOT [Concomitant]
     Active Substance: SENNOSIDES
  4. DIPHENHYDRAMINE HYDROCHLORIDE. [Concomitant]
     Active Substance: DIPHENHYDRAMINE HYDROCHLORIDE
     Indication: PREMEDICATION
     Route: 048
  5. DOMPERIDONE [Concomitant]
     Active Substance: DOMPERIDONE
     Indication: PREMEDICATION
  6. FERROUS GLUCONATE [Concomitant]
     Active Substance: FERROUS GLUCONATE
  7. METHYLPREDNISOLONE SODIUM SUCCINATE. [Suspect]
     Active Substance: METHYLPREDNISOLONE SODIUM SUCCINATE
     Indication: PREMEDICATION
     Route: 042
  8. RITUXIMAB. [Suspect]
     Active Substance: RITUXIMAB
     Indication: RHEUMATOID ARTHRITIS
     Route: 042
  9. CIPRALEX [Concomitant]
     Active Substance: ESCITALOPRAM OXALATE
  10. FUROSEMIDE. [Concomitant]
     Active Substance: FUROSEMIDE
  11. METFORMIN [Concomitant]
     Active Substance: METFORMIN HYDROCHLORIDE
     Route: 065
  12. ROSUVASTATIN. [Concomitant]
     Active Substance: ROSUVASTATIN
  13. JANUVIA [Concomitant]
     Active Substance: SITAGLIPTIN PHOSPHATE
  14. METOPROLOL. [Concomitant]
     Active Substance: METOPROLOL
  15. PREDNISONE. [Concomitant]
     Active Substance: PREDNISONE
  16. ACETAMINOPHEN. [Concomitant]
     Active Substance: ACETAMINOPHEN
     Indication: PREMEDICATION
     Route: 048
  17. FOLIC ACID. [Concomitant]
     Active Substance: FOLIC ACID
  18. GABAPENTIN. [Concomitant]
     Active Substance: GABAPENTIN
  19. RAMIPRIL. [Concomitant]
     Active Substance: RAMIPRIL
  20. METHOTREXATE. [Concomitant]
     Active Substance: METHOTREXATE
     Route: 058
  21. NITRO [GLYCERYLTRINITRATE] [Concomitant]

REACTIONS (13)
  - Blood glucose increased [Not Recovered/Not Resolved]
  - Blood pressure systolic increased [Not Recovered/Not Resolved]
  - Weight fluctuation [Not Recovered/Not Resolved]
  - Angina pectoris [Not Recovered/Not Resolved]
  - Blood pressure increased [Not Recovered/Not Resolved]
  - Weight decreased [Not Recovered/Not Resolved]
  - Dizziness [Not Recovered/Not Resolved]
  - Headache [Not Recovered/Not Resolved]
  - Hypertonic bladder [Not Recovered/Not Resolved]
  - Blood pressure diastolic decreased [Not Recovered/Not Resolved]
  - Cellulitis [Not Recovered/Not Resolved]
  - Urinary tract infection [Not Recovered/Not Resolved]
  - Weight increased [Not Recovered/Not Resolved]
